FAERS Safety Report 9036765 (Version 1)
Quarter: 2013Q1

REPORT INFORMATION
  Report Type: Spontaneous
  Country: US (occurrence: None)
  Receive Date: 20130123
  Receipt Date: 20130123
  Transmission Date: 20140127
  Serious: Yes (Disabling, Other)
  Sender: FDA-Public Use
  Company Number: None

PATIENT
  Age: 22 Year
  Sex: Female
  Weight: 63.5 kg

DRUGS (1)
  1. MIRENA [Suspect]
     Indication: BLOOD IRON DECREASED
     Route: 015
     Dates: start: 20100729, end: 20121126

REACTIONS (12)
  - Cholecystectomy [None]
  - Cerebrovascular accident [None]
  - Visual impairment [None]
  - Neck pain [None]
  - Constipation [None]
  - Anxiety [None]
  - Presyncope [None]
  - Confusional state [None]
  - Mental impairment [None]
  - Fibromyalgia [None]
  - Nuclear magnetic resonance imaging brain abnormal [None]
  - Hepatic lesion [None]
